FAERS Safety Report 6583974-2 (Version None)
Quarter: 2010Q1

REPORT INFORMATION
  Report Type: 
  Country: None (occurrence: None)
  Receive Date: 20100213
  Receipt Date: 20100213
  Transmission Date: 20100710
  Serious: No
  Sender: FDA-Public Use
  Company Number: None

PATIENT
  Sex: Male
  Weight: 106.5953 kg

DRUGS (1)
  1. LIPITOR [Suspect]
     Indication: BLOOD CHOLESTEROL INCREASED
     Dosage: 40MG ONCE DAILY
     Dates: start: 20080601, end: 20090816

REACTIONS (5)
  - DYSPNOEA [None]
  - MUSCLE ATROPHY [None]
  - RHABDOMYOLYSIS [None]
  - SYNCOPE [None]
  - VAGUS NERVE DISORDER [None]
